FAERS Safety Report 10092493 (Version 1)
Quarter: 2014Q2

REPORT INFORMATION
  Report Type: Spontaneous
  Country: US (occurrence: US)
  Receive Date: 20140421
  Receipt Date: 20140421
  Transmission Date: 20141212
  Serious: No
  Sender: FDA-Public Use
  Company Number: US-SANOFI-AVENTIS-2013SA040648

PATIENT
  Sex: 0

DRUGS (2)
  1. ALLEGRA 24 HOUR [Suspect]
     Indication: PRODUCT USED FOR UNKNOWN INDICATION
     Route: 048
  2. ALLEGRA D [Concomitant]
     Dosage: 12HR DURING THE DAY

REACTIONS (1)
  - Insomnia [Unknown]
